FAERS Safety Report 8676134 (Version 2)
Quarter: 2015Q2

REPORT INFORMATION
  Report Type: Spontaneous
  Country: US (occurrence: US)
  Receive Date: 20120720
  Receipt Date: 20150428
  Transmission Date: 20150821
  Serious: No
  Sender: FDA-Public Use
  Company Number: US-ASTRAZENECA-2012SE47830

PATIENT
  Age: 45 Year
  Sex: Male
  Weight: 81.6 kg

DRUGS (1)
  1. CRESTOR [Suspect]
     Active Substance: ROSUVASTATIN CALCIUM
     Indication: BLOOD CHOLESTEROL
     Route: 048
     Dates: start: 2012, end: 201410

REACTIONS (3)
  - Intentional product misuse [Unknown]
  - Blood cholesterol increased [Unknown]
  - Drug ineffective [Unknown]
